FAERS Safety Report 5197439-6 (Version None)
Quarter: 2006Q4

REPORT INFORMATION
  Report Type: 
  Country: None (occurrence: None)
  Receive Date: 20060927
  Receipt Date: 20060512
  Transmission Date: 20070319
  Serious: No
  Sender: FDA-Public Use
  Company Number: US-CVT-061018

PATIENT
  Age: 56 Year
  Sex: Male

DRUGS (1)
  1. RANEXA [Suspect]
     Indication: ANGINA PECTORIS
     Dosage: 500MG, BID, ORAL
     Route: 048
     Dates: start: 20060101, end: 20060101

REACTIONS (4)
  - DEPRESSED MOOD [None]
  - MUSCLE CONTRACTIONS INVOLUNTARY [None]
  - NERVOUSNESS [None]
  - PARAESTHESIA [None]
